FAERS Safety Report 9437109 (Version 2)
Quarter: 2013Q3

REPORT INFORMATION
  Report Type: Report from Study
  Country: GB (occurrence: GB)
  Receive Date: 20130802
  Receipt Date: 20130829
  Transmission Date: 20140515
  Serious: Yes (Life-Threatening, Hospitalization, Other)
  Sender: FDA-Public Use
  Company Number: GB-MPIJNJ-2013-05546

PATIENT
  Sex: 0

DRUGS (13)
  1. VELCADE [Suspect]
     Indication: PLASMA CELL MYELOMA
     Dosage: 1 MG/M2, UNK
     Route: 065
     Dates: start: 20130603
  2. DOXORUBICIN [Suspect]
     Indication: PLASMA CELL MYELOMA
     Dosage: 9 MG/M2, UNK
     Route: 065
     Dates: start: 20130603, end: 20130618
  3. DEXAMETHASONE [Suspect]
     Indication: PLASMA CELL MYELOMA
     Dosage: 20 MG, UNK
     Route: 065
     Dates: start: 20130603
  4. ACICLOVIR [Concomitant]
     Indication: CHEMOTHERAPY
     Dosage: 200 MG, BID
     Route: 048
     Dates: start: 20130603
  5. ALLOPURINOL [Concomitant]
     Indication: CHEMOTHERAPY
     Dosage: 100 MG, QD
     Route: 048
     Dates: start: 20130603
  6. CO-TRIMOXAZOLE [Concomitant]
     Indication: CHEMOTHERAPY
     Dosage: 480 MG, 3/WEEK
     Route: 048
     Dates: start: 20130603
  7. RANITIDINE [Concomitant]
     Indication: CHEMOTHERAPY
     Dosage: 150 MG, BID
     Route: 048
     Dates: start: 20130603
  8. ATORVASTATIN [Concomitant]
     Indication: PROPHYLAXIS
     Dosage: 10 MG, QD
     Route: 048
  9. EPREX [Concomitant]
     Indication: NEPHROGENIC ANAEMIA
     Dosage: 2000 IU, 2/WEEK
     Route: 042
  10. FOLIC ACID [Concomitant]
     Indication: ANAEMIA
     Dosage: 5 MG, QD
     Route: 048
  11. HYDROXOCOBALAMIN [Concomitant]
     Indication: ANAEMIA
     Dosage: 1 MG, UNK
     Route: 030
  12. IRON SUCROSE [Concomitant]
     Indication: ANAEMIA
     Dosage: 100 MG, UNK
     Route: 042
  13. METOCLOPRAMIDE [Concomitant]
     Indication: ANTIEMETIC SUPPORTIVE CARE
     Dosage: 10 MG, TID
     Route: 048

REACTIONS (2)
  - Acute myocardial infarction [Not Recovered/Not Resolved]
  - Lower respiratory tract infection [Recovered/Resolved]
